FAERS Safety Report 4632820-2 (Version None)
Quarter: 2005Q2

REPORT INFORMATION
  Report Type: 
  Country: None (occurrence: None)
  Receive Date: 20050412
  Receipt Date: 20050331
  Transmission Date: 20051028
  Serious: Yes (Other)
  Sender: FDA-Public Use
  Company Number: US-BRISTOL-MYERS SQUIBB COMPANY-12917704

PATIENT
  Age: 67 Year
  Sex: Female

DRUGS (1)
  1. COUMADIN [Suspect]
     Indication: HEART VALVE REPLACEMENT

REACTIONS (4)
  - DIZZINESS [None]
  - HEADACHE [None]
  - HYPOAESTHESIA [None]
  - MUSCULOSKELETAL STIFFNESS [None]
